FAERS Safety Report 6246035-8 (Version None)
Quarter: 2009Q2

REPORT INFORMATION
  Report Type: 
  Country: None (occurrence: None)
  Receive Date: 20090626
  Receipt Date: 20081202
  Transmission Date: 20091009
  Serious: No
  Sender: FDA-Public Use
  Company Number: A0758955A

PATIENT
  Sex: Female

DRUGS (1)
  1. IMITREX [Suspect]
     Indication: MIGRAINE
     Route: 048

REACTIONS (2)
  - PALPITATIONS [None]
  - PARAESTHESIA [None]
